FAERS Safety Report 16947043 (Version 5)
Quarter: 2019Q4

REPORT INFORMATION
  Report Type: Spontaneous
  Country: US (occurrence: US)
  Receive Date: 20191022
  Receipt Date: 20191202
  Transmission Date: 20200122
  Serious: No
  Sender: FDA-Public Use
  Company Number: US-PFIZER INC-2019454853

PATIENT
  Age: 58 Year
  Sex: Female
  Weight: 77.11 kg

DRUGS (2)
  1. LYRICA [Suspect]
     Active Substance: PREGABALIN
     Indication: PERIPHERAL SENSORIMOTOR NEUROPATHY
     Dosage: 25 MG, UNK
  2. LYRICA [Suspect]
     Active Substance: PREGABALIN
     Dosage: 75 MG, 2X/DAY
     Route: 048
     Dates: start: 20190205

REACTIONS (13)
  - Hot flush [Recovered/Resolved]
  - Nausea [Recovered/Resolved]
  - Body temperature increased [Unknown]
  - Withdrawal syndrome [Recovered/Resolved]
  - Nasopharyngitis [Recovered/Resolved]
  - Chills [Unknown]
  - Pain [Unknown]
  - Insomnia [Recovered/Resolved]
  - Malaise [Unknown]
  - Diarrhoea [Recovered/Resolved]
  - Pain in extremity [Unknown]
  - Intentional product use issue [Unknown]
  - Headache [Unknown]
